FAERS Safety Report 4520211-4 (Version None)
Quarter: 2004Q4

REPORT INFORMATION
  Report Type: 
  Country: None (occurrence: None)
  Receive Date: 20041022
  Receipt Date: 20040628
  Transmission Date: 20050328
  Serious: No
  Sender: FDA-Public Use
  Company Number: 2004221585US

PATIENT
  Sex: Male
  Weight: 81.6 kg

DRUGS (11)
  1. INSPRA (ELPERENONE) TABLET [Suspect]
     Dosage: 50 MG, QD, ORAL
     Route: 048
     Dates: start: 20040612
  2. LASIX [Concomitant]
  3. LACTULOSE [Concomitant]
  4. VITAMINS AND MINERALS [Concomitant]
  5. POTASSIUM [Concomitant]
  6. VITAMIN C [Concomitant]
  7. CALCIUM [Concomitant]
  8. MAGNESIUM [Concomitant]
  9. VITAMIN B-12 [Concomitant]
  10. VITAMIN B6 [Concomitant]
  11. DYRENIUM [Concomitant]

REACTIONS (3)
  - DRUG INEFFECTIVE [None]
  - OEDEMA [None]
  - WEIGHT INCREASED [None]
